FAERS Safety Report 7610371-0 (Version None)
Quarter: 2011Q3

REPORT INFORMATION
  Report Type: 
  Country: None (occurrence: None)
  Receive Date: 20110715
  Receipt Date: 20110706
  Transmission Date: 20111222
  Serious: Yes (Other)
  Sender: FDA-Public Use
  Company Number: JP-JNJFOC-20110700685

PATIENT
  Sex: Male
  Weight: 68 kg

DRUGS (7)
  1. ABIRATERONE ACETATE [Suspect]
     Indication: PROSTATE CANCER METASTATIC
     Route: 048
     Dates: start: 20110526, end: 20110616
  2. DIOVAN [Concomitant]
     Indication: HYPERTENSION
     Route: 048
  3. ABIRATERONE ACETATE [Suspect]
     Route: 048
  4. DEPAS [Concomitant]
     Route: 048
  5. ZOMETA [Concomitant]
     Route: 042
  6. NORVASC [Concomitant]
     Indication: PROSTATE CANCER
     Route: 048
  7. ZOLADEX [Concomitant]
     Indication: PROSTATE CANCER
     Route: 058

REACTIONS (2)
  - ALANINE AMINOTRANSFERASE INCREASED [None]
  - GAMMA-GLUTAMYLTRANSFERASE INCREASED [None]
